FAERS Safety Report 8305228-6 (Version None)
Quarter: 2012Q2

REPORT INFORMATION
  Report Type: 
  Country: None (occurrence: None)
  Receive Date: 20120423
  Receipt Date: 20120410
  Transmission Date: 20120825
  Serious: No
  Sender: FDA-Public Use
  Company Number: JP-JNJFOC-20120311035

PATIENT
  Age: 64 Year
  Sex: Female

DRUGS (9)
  1. FENTANYL-100 [Suspect]
     Route: 062
     Dates: start: 20120321
  2. RABEPRAZOLE SODIUM [Concomitant]
     Route: 048
  3. MAGMITT [Concomitant]
     Route: 048
  4. FENTANYL-100 [Suspect]
     Route: 062
     Dates: start: 20110101
  5. LIVALO [Concomitant]
     Route: 048
  6. FENTANYL-100 [Suspect]
     Indication: PAIN
     Route: 062
  7. FENTANYL-100 [Suspect]
     Route: 062
  8. CEFAZOLIN SODIUM [Concomitant]
     Route: 048
  9. FENTANYL-100 [Suspect]
     Route: 062

REACTIONS (3)
  - MOOD SWINGS [None]
  - NAUSEA [None]
  - DRUG PRESCRIBING ERROR [None]
